FAERS Safety Report 6450732-9 (Version None)
Quarter: 2009Q4

REPORT INFORMATION
  Report Type: 
  Country: None (occurrence: None)
  Receive Date: 20091112
  Receipt Date: 20081205
  Transmission Date: 20100525
  Serious: Yes (Other)
  Sender: FDA-Public Use
  Company Number: 2008BH013470

PATIENT

DRUGS (3)
  1. PHENERGAN HCL [Suspect]
     Indication: NAUSEA
  2. PHENERGAN HCL [Suspect]
     Indication: VOMITING
  3. PHENERGAN HCL [Suspect]

REACTIONS (1)
  - RESPIRATORY RATE DECREASED [None]
